FAERS Safety Report 12660457 (Version 1)
Quarter: 2016Q3

REPORT INFORMATION
  Report Type: Report from Study
  Country: US (occurrence: US)
  Receive Date: 20160817
  Receipt Date: 20160817
  Transmission Date: 20161109
  Serious: Yes (Hospitalization, Other)
  Sender: FDA-Public Use
  Company Number: US-ASTELLAS-2011US002502

PATIENT
  Age: 51 Year
  Sex: Male

DRUGS (5)
  1. VISMODEGIB [Suspect]
     Active Substance: VISMODEGIB
     Route: 048
     Dates: start: 20110518, end: 20110521
  2. ERLOTINIB [Suspect]
     Active Substance: ERLOTINIB
     Indication: ADENOCARCINOMA OF COLON
     Route: 048
     Dates: start: 20110420, end: 20110520
  3. VISMODEGIB [Suspect]
     Active Substance: VISMODEGIB
     Indication: ADENOCARCINOMA OF COLON
     Route: 048
     Dates: start: 20110420, end: 20110520
  4. ERLOTINIB [Suspect]
     Active Substance: ERLOTINIB
     Route: 048
     Dates: start: 20110518, end: 20110521
  5. GEMCITABINE [Suspect]
     Active Substance: GEMCITABINE\GEMCITABINE HYDROCHLORIDE
     Indication: ADENOCARCINOMA OF COLON
     Route: 048
     Dates: start: 20110420, end: 20110515

REACTIONS (5)
  - Large intestinal obstruction [Unknown]
  - Colitis [Not Recovered/Not Resolved]
  - Abdominal pain [Not Recovered/Not Resolved]
  - Nausea [Not Recovered/Not Resolved]
  - Pain [Unknown]

NARRATIVE: CASE EVENT DATE: 20110519
